FAERS Safety Report 9529875 (Version 1)
Quarter: 2013Q3

REPORT INFORMATION
  Report Type: Spontaneous
  Country: US (occurrence: US)
  Receive Date: 20130917
  Receipt Date: 20130917
  Transmission Date: 20140515
  Serious: No
  Sender: FDA-Public Use
  Company Number: US-PFIZER INC-2013265775

PATIENT
  Age: 56 Year
  Sex: Male

DRUGS (1)
  1. XELJANZ [Suspect]
     Indication: PSORIATIC ARTHROPATHY
     Dosage: 5 MG, 2X/DAY
     Route: 048
     Dates: start: 201307

REACTIONS (1)
  - Blood cholesterol increased [Unknown]
